FAERS Safety Report 15602787 (Version 1)
Quarter: 2018Q4

REPORT INFORMATION
  Report Type: Spontaneous
  Country: PK (occurrence: PK)
  Receive Date: 20181109
  Receipt Date: 20181109
  Transmission Date: 20190205
  Serious: Yes (Death, Life-Threatening, Hospitalization)
  Sender: FDA-Public Use
  Company Number: PK-PFIZER INC-2018454849

PATIENT
  Age: 34 Year
  Sex: Male
  Weight: 56 kg

DRUGS (5)
  1. ETHIONAMIDE [Suspect]
     Active Substance: ETHIONAMIDE
     Indication: TUBERCULOSIS
     Dosage: 750 MG, 1X/DAY
     Route: 048
  2. CLOFAZIMINE [Suspect]
     Active Substance: CLOFAZIMINE
     Indication: TUBERCULOSIS
     Dosage: 100 MG, 1X/DAY
     Route: 048
     Dates: start: 20180723
  3. DELAMANID [Suspect]
     Active Substance: DELAMANID
     Indication: TUBERCULOSIS
     Dosage: 200 MG, 1X/DAY
     Route: 048
     Dates: start: 20180723
  4. MOXIFLOXACIN. [Suspect]
     Active Substance: MOXIFLOXACIN
     Indication: TUBERCULOSIS
     Dosage: 400 MG, 1X/DAY
     Route: 048
     Dates: start: 20180710
  5. LINEZOLID. [Suspect]
     Active Substance: LINEZOLID
     Indication: TUBERCULOSIS
     Dosage: 600 MG, 1X/DAY
     Route: 048
     Dates: start: 20180723, end: 20180922

REACTIONS (3)
  - Asthenia [Unknown]
  - Vomiting [Unknown]
  - Pancytopenia [Fatal]

NARRATIVE: CASE EVENT DATE: 20180820
